FAERS Safety Report 25918216 (Version 1)
Quarter: 2025Q4

REPORT INFORMATION
  Report Type: Spontaneous
  Country: TR (occurrence: TR)
  Receive Date: 20251014
  Receipt Date: 20251014
  Transmission Date: 20260118
  Serious: Yes (Hospitalization)
  Sender: MYLAN
  Company Number: TR-MYLANLABS-2025M1086569

PATIENT
  Sex: Male

DRUGS (68)
  1. GABAPENTIN [Suspect]
     Active Substance: GABAPENTIN
     Indication: SUNCT syndrome
     Dosage: UNK
  2. GABAPENTIN [Suspect]
     Active Substance: GABAPENTIN
     Dosage: UNK
     Route: 065
  3. GABAPENTIN [Suspect]
     Active Substance: GABAPENTIN
     Dosage: UNK
     Route: 065
  4. GABAPENTIN [Suspect]
     Active Substance: GABAPENTIN
     Dosage: UNK
  5. PREGABALIN [Suspect]
     Active Substance: PREGABALIN
     Indication: SUNCT syndrome
     Dosage: 225 MILLIGRAM, BID
  6. PREGABALIN [Suspect]
     Active Substance: PREGABALIN
     Dosage: 225 MILLIGRAM, BID
     Route: 065
  7. PREGABALIN [Suspect]
     Active Substance: PREGABALIN
     Dosage: 225 MILLIGRAM, BID
     Route: 065
  8. PREGABALIN [Suspect]
     Active Substance: PREGABALIN
     Dosage: 225 MILLIGRAM, BID
  9. CARBAMAZEPINE [Suspect]
     Active Substance: CARBAMAZEPINE
     Indication: SUNCT syndrome
     Dosage: UNK
  10. CARBAMAZEPINE [Suspect]
     Active Substance: CARBAMAZEPINE
     Dosage: UNK
     Route: 065
  11. CARBAMAZEPINE [Suspect]
     Active Substance: CARBAMAZEPINE
     Dosage: UNK
     Route: 065
  12. CARBAMAZEPINE [Suspect]
     Active Substance: CARBAMAZEPINE
     Dosage: UNK
  13. LAMOTRIGINE [Suspect]
     Active Substance: LAMOTRIGINE
     Indication: SUNCT syndrome
     Dosage: UNK
  14. LAMOTRIGINE [Suspect]
     Active Substance: LAMOTRIGINE
     Dosage: UNK
     Route: 065
  15. LAMOTRIGINE [Suspect]
     Active Substance: LAMOTRIGINE
     Dosage: UNK
     Route: 065
  16. LAMOTRIGINE [Suspect]
     Active Substance: LAMOTRIGINE
     Dosage: UNK
  17. METHYLPREDNISOLONE [Suspect]
     Active Substance: METHYLPREDNISOLONE
     Indication: SUNCT syndrome
     Dosage: INITIALLY USED FOR HEADACHE MANAGEMENT
  18. METHYLPREDNISOLONE [Suspect]
     Active Substance: METHYLPREDNISOLONE
     Dosage: INITIALLY USED FOR HEADACHE MANAGEMENT
  19. METHYLPREDNISOLONE [Suspect]
     Active Substance: METHYLPREDNISOLONE
     Dosage: INITIALLY USED FOR HEADACHE MANAGEMENT
     Route: 065
  20. METHYLPREDNISOLONE [Suspect]
     Active Substance: METHYLPREDNISOLONE
     Dosage: INITIALLY USED FOR HEADACHE MANAGEMENT
     Route: 065
  21. METHYLPREDNISOLONE [Suspect]
     Active Substance: METHYLPREDNISOLONE
     Dosage: 40 MILLIGRAM, USED WITH BILATERAL GON BLOCKS UPON PRESENTATION
  22. METHYLPREDNISOLONE [Suspect]
     Active Substance: METHYLPREDNISOLONE
     Dosage: 40 MILLIGRAM, USED WITH BILATERAL GON BLOCKS UPON PRESENTATION
  23. METHYLPREDNISOLONE [Suspect]
     Active Substance: METHYLPREDNISOLONE
     Dosage: 40 MILLIGRAM, USED WITH BILATERAL GON BLOCKS UPON PRESENTATION
     Route: 065
  24. METHYLPREDNISOLONE [Suspect]
     Active Substance: METHYLPREDNISOLONE
     Dosage: 40 MILLIGRAM, USED WITH BILATERAL GON BLOCKS UPON PRESENTATION
     Route: 065
  25. METHYLPREDNISOLONE [Suspect]
     Active Substance: METHYLPREDNISOLONE
     Dosage: 40 MILLIGRAM, USED AGAIN WHEN SUBSEQUENT ATTACKS WERE  MILDER
  26. METHYLPREDNISOLONE [Suspect]
     Active Substance: METHYLPREDNISOLONE
     Dosage: 40 MILLIGRAM, USED AGAIN WHEN SUBSEQUENT ATTACKS WERE  MILDER
     Route: 065
  27. METHYLPREDNISOLONE [Suspect]
     Active Substance: METHYLPREDNISOLONE
     Dosage: 40 MILLIGRAM, USED AGAIN WHEN SUBSEQUENT ATTACKS WERE  MILDER
  28. METHYLPREDNISOLONE [Suspect]
     Active Substance: METHYLPREDNISOLONE
     Dosage: 40 MILLIGRAM, USED AGAIN WHEN SUBSEQUENT ATTACKS WERE  MILDER
     Route: 065
  29. TOPIRAMATE [Suspect]
     Active Substance: TOPIRAMATE
     Indication: SUNCT syndrome
     Dosage: INITIALLY USED FOR HEADACHE MANAGEMENT
  30. TOPIRAMATE [Suspect]
     Active Substance: TOPIRAMATE
     Dosage: INITIALLY USED FOR HEADACHE MANAGEMENT
  31. TOPIRAMATE [Suspect]
     Active Substance: TOPIRAMATE
     Dosage: INITIALLY USED FOR HEADACHE MANAGEMENT
     Route: 065
  32. TOPIRAMATE [Suspect]
     Active Substance: TOPIRAMATE
     Dosage: INITIALLY USED FOR HEADACHE MANAGEMENT
     Route: 065
  33. TOPIRAMATE [Suspect]
     Active Substance: TOPIRAMATE
     Dosage: 100 MILLIGRAM, BID
  34. TOPIRAMATE [Suspect]
     Active Substance: TOPIRAMATE
     Dosage: 100 MILLIGRAM, BID
  35. TOPIRAMATE [Suspect]
     Active Substance: TOPIRAMATE
     Dosage: 100 MILLIGRAM, BID
     Route: 065
  36. TOPIRAMATE [Suspect]
     Active Substance: TOPIRAMATE
     Dosage: 100 MILLIGRAM, BID
     Route: 065
  37. INDOMETHACIN [Suspect]
     Active Substance: INDOMETHACIN
     Indication: SUNCT syndrome
     Dosage: UNK
  38. INDOMETHACIN [Suspect]
     Active Substance: INDOMETHACIN
     Dosage: UNK
     Route: 065
  39. INDOMETHACIN [Suspect]
     Active Substance: INDOMETHACIN
     Dosage: UNK
     Route: 065
  40. INDOMETHACIN [Suspect]
     Active Substance: INDOMETHACIN
     Dosage: UNK
  41. LIDOCAINE [Suspect]
     Active Substance: LIDOCAINE
     Indication: SUNCT syndrome
     Dosage: UNK
  42. LIDOCAINE [Suspect]
     Active Substance: LIDOCAINE
     Dosage: UNK
  43. LIDOCAINE [Suspect]
     Active Substance: LIDOCAINE
     Dosage: UNK
     Route: 045
  44. LIDOCAINE [Suspect]
     Active Substance: LIDOCAINE
     Dosage: UNK
     Route: 045
  45. LIDOCAINE [Suspect]
     Active Substance: LIDOCAINE
     Dosage: TREATED WITH BILATERAL GON BLOCKS
  46. LIDOCAINE [Suspect]
     Active Substance: LIDOCAINE
     Dosage: TREATED WITH BILATERAL GON BLOCKS
  47. LIDOCAINE [Suspect]
     Active Substance: LIDOCAINE
     Dosage: TREATED WITH BILATERAL GON BLOCKS
     Route: 065
  48. LIDOCAINE [Suspect]
     Active Substance: LIDOCAINE
     Dosage: TREATED WITH BILATERAL GON BLOCKS
     Route: 065
  49. BUPIVACAINE [Suspect]
     Active Substance: BUPIVACAINE
     Indication: SUNCT syndrome
     Dosage: BIMONTHLY, BILATERAL GREATER OCCIPITAL NERVE (GON) INJECTIONS
  50. BUPIVACAINE [Suspect]
     Active Substance: BUPIVACAINE
     Dosage: BIMONTHLY, BILATERAL GREATER OCCIPITAL NERVE (GON) INJECTIONS
     Route: 065
  51. BUPIVACAINE [Suspect]
     Active Substance: BUPIVACAINE
     Dosage: BIMONTHLY, BILATERAL GREATER OCCIPITAL NERVE (GON) INJECTIONS
     Route: 065
  52. BUPIVACAINE [Suspect]
     Active Substance: BUPIVACAINE
     Dosage: BIMONTHLY, BILATERAL GREATER OCCIPITAL NERVE (GON) INJECTIONS
  53. AMITRIPTYLINE [Suspect]
     Active Substance: AMITRIPTYLINE
     Indication: SUNCT syndrome
     Dosage: 10 MILLIGRAM, QD
  54. AMITRIPTYLINE [Suspect]
     Active Substance: AMITRIPTYLINE
     Dosage: 10 MILLIGRAM, QD
  55. AMITRIPTYLINE [Suspect]
     Active Substance: AMITRIPTYLINE
     Dosage: 10 MILLIGRAM, QD
     Route: 065
  56. AMITRIPTYLINE [Suspect]
     Active Substance: AMITRIPTYLINE
     Dosage: 10 MILLIGRAM, QD
     Route: 065
  57. AMITRIPTYLINE [Suspect]
     Active Substance: AMITRIPTYLINE
     Dosage: 25 MILLIGRAM, QD
  58. AMITRIPTYLINE [Suspect]
     Active Substance: AMITRIPTYLINE
     Dosage: 25 MILLIGRAM, QD
  59. AMITRIPTYLINE [Suspect]
     Active Substance: AMITRIPTYLINE
     Dosage: 25 MILLIGRAM, QD
     Route: 065
  60. AMITRIPTYLINE [Suspect]
     Active Substance: AMITRIPTYLINE
     Dosage: 25 MILLIGRAM, QD
     Route: 065
  61. LANREOTIDE [Concomitant]
     Active Substance: LANREOTIDE
     Indication: Pituitary tumour benign
     Dosage: INITIALLY TREATED FOR THE SIX YEARS
  62. LANREOTIDE [Concomitant]
     Active Substance: LANREOTIDE
     Dosage: INITIALLY TREATED FOR THE SIX YEARS
  63. LANREOTIDE [Concomitant]
     Active Substance: LANREOTIDE
     Dosage: INITIALLY TREATED FOR THE SIX YEARS
     Route: 065
  64. LANREOTIDE [Concomitant]
     Active Substance: LANREOTIDE
     Dosage: INITIALLY TREATED FOR THE SIX YEARS
     Route: 065
  65. LANREOTIDE [Concomitant]
     Active Substance: LANREOTIDE
     Dosage: AFTER OCTREOTIDE FAILED TO TREAT ADENOMA
  66. LANREOTIDE [Concomitant]
     Active Substance: LANREOTIDE
     Dosage: AFTER OCTREOTIDE FAILED TO TREAT ADENOMA
  67. LANREOTIDE [Concomitant]
     Active Substance: LANREOTIDE
     Dosage: AFTER OCTREOTIDE FAILED TO TREAT ADENOMA
     Route: 065
  68. LANREOTIDE [Concomitant]
     Active Substance: LANREOTIDE
     Dosage: AFTER OCTREOTIDE FAILED TO TREAT ADENOMA
     Route: 065

REACTIONS (2)
  - Drug ineffective for unapproved indication [Unknown]
  - Off label use [Unknown]
